FAERS Safety Report 6215422-6 (Version None)
Quarter: 2009Q2

REPORT INFORMATION
  Report Type: 
  Country: None (occurrence: None)
  Receive Date: 20090603
  Receipt Date: 20090522
  Transmission Date: 20091009
  Serious: Yes (Other)
  Sender: FDA-Public Use
  Company Number: 2009S1004414

PATIENT
  Age: 87 Year
  Sex: Female

DRUGS (3)
  1. PHOSPHOSODA FLAVOR NOT SPECIFIED [Suspect]
     Indication: COLONOSCOPY
     Dosage: PO
     Route: 048
     Dates: start: 20051201, end: 20051201
  2. COZAAR [Concomitant]
  3. SYNTHROID [Concomitant]

REACTIONS (3)
  - DYSGEUSIA [None]
  - RENAL DISORDER [None]
  - RENAL IMPAIRMENT [None]
